FAERS Safety Report 8699102 (Version 2)
Quarter: 2012Q4

REPORT INFORMATION
  Report Type: 
  Country: US (occurrence: US)
  Receive Date: 20120802
  Receipt Date: 20121002
  Transmission Date: 20130627
  Serious: No
  Sender: FDA-Public Use
  Company Number: US-ASTRAZENECA-2012SE51465

PATIENT
  Age: 52 Year
  Sex: Male

DRUGS (7)
  1. PRILOSEC [Suspect]
     Indication: DYSPEPSIA
     Route: 048
  2. PANTOPRAZOLE [Interacting]
     Route: 065
  3. UNSPECIFIED INGREDIENT [Interacting]
     Route: 065
  4. PEPCID [Suspect]
  5. ZANTAC [Suspect]
  6. NEXIUM [Concomitant]
  7. ALKA SELTZER [Concomitant]

REACTIONS (3)
  - Potentiating drug interaction [Unknown]
  - Dyspepsia [Unknown]
  - Drug ineffective [Unknown]
